FAERS Safety Report 8922717 (Version 3)
Quarter: 2013Q3

REPORT INFORMATION
  Report Type: Spontaneous
  Country: CA (occurrence: CA)
  Receive Date: 20121123
  Receipt Date: 20130906
  Transmission Date: 20140515
  Serious: Yes (Other)
  Sender: FDA-Public Use
  Company Number: CA-ROCHE-1048781

PATIENT
  Age: 14 Year
  Sex: Male

DRUGS (4)
  1. ACCUTANE [Suspect]
     Indication: ACNE
     Route: 048
     Dates: start: 201201, end: 20120227
  2. ACCUTANE [Suspect]
     Route: 048
     Dates: start: 20120305
  3. ACCUTANE [Suspect]
     Route: 048
     Dates: start: 201206, end: 20121020
  4. ACCUTANE [Suspect]
     Route: 048
     Dates: start: 20120801

REACTIONS (14)
  - Eye movement disorder [Recovered/Resolved]
  - Drug ineffective [Unknown]
  - Keratosis pilaris [Unknown]
  - Acne [Not Recovered/Not Resolved]
  - Tinnitus [Not Recovered/Not Resolved]
  - Pharyngeal hypoaesthesia [Not Recovered/Not Resolved]
  - Alopecia [Not Recovered/Not Resolved]
  - Ocular hyperaemia [Not Recovered/Not Resolved]
  - Dyspnoea [Not Recovered/Not Resolved]
  - Dry eye [Not Recovered/Not Resolved]
  - Dry skin [Not Recovered/Not Resolved]
  - Hair texture abnormal [Not Recovered/Not Resolved]
  - Back pain [Unknown]
  - Rash [Not Recovered/Not Resolved]
